FAERS Safety Report 5408006-0 (Version None)
Quarter: 2007Q3

REPORT INFORMATION
  Report Type: 
  Country: None (occurrence: None)
  Receive Date: 20070726
  Receipt Date: 20070716
  Transmission Date: 20080115
  Serious: Yes (Death, Hospitalization)
  Sender: FDA-Public Use
  Company Number: ALB-002-07-FR

PATIENT
  Age: 63 Year
  Sex: Male

DRUGS (1)
  1. OCTALBIN 20% (HUMAN ALBUMIN) BATCH# UNKNOWN [Suspect]
     Indication: HYPOALBUMINAEMIA
     Dosage: 20 G I.V.
     Route: 042
     Dates: start: 20070616, end: 20070616

REACTIONS (2)
  - ANAPHYLACTIC SHOCK [None]
  - CIRCULATORY COLLAPSE [None]
